FAERS Safety Report 9953024 (Version 1)
Quarter: 2014Q1

REPORT INFORMATION
  Report Type: Report from Study
  Country: US (occurrence: US)
  Receive Date: 20140304
  Receipt Date: 20140304
  Transmission Date: 20141002
  Serious: No
  Sender: FDA-Public Use
  Company Number: US-ABBVIE-13P-163-1078884-00

PATIENT
  Age: 46 Year
  Sex: Male

DRUGS (8)
  1. HUMIRA [Suspect]
     Indication: RHEUMATOID ARTHRITIS
     Dates: start: 201301
  2. OXYCODONE [Concomitant]
     Indication: PAIN
     Route: 048
  3. RITALIN [Concomitant]
     Indication: ATTENTION DEFICIT/HYPERACTIVITY DISORDER
  4. ROZEREM [Concomitant]
     Indication: SLEEP DISORDER
     Dosage: AT BEDTIME
     Route: 048
  5. PROTONIX [Concomitant]
     Indication: DYSPEPSIA
     Route: 048
  6. NASONEX [Concomitant]
     Indication: HYPERSENSITIVITY
     Dosage: 2 SPRAYS IN EACH NOSTRIL IN AM AND PM
  7. COLACE [Concomitant]
     Indication: CONSTIPATION
     Route: 048
  8. ZYRTEC [Concomitant]
     Indication: HYPERSENSITIVITY
     Route: 048

REACTIONS (4)
  - Swelling [Recovering/Resolving]
  - Arthralgia [Recovering/Resolving]
  - Arthralgia [Recovering/Resolving]
  - Arthralgia [Recovering/Resolving]
